FAERS Safety Report 5519040-4 (Version None)
Quarter: 2007Q4

REPORT INFORMATION
  Report Type: 
  Country: None (occurrence: None)
  Receive Date: 20071116
  Receipt Date: 20071109
  Transmission Date: 20080405
  Serious: Yes (Disabling, Other)
  Sender: FDA-Public Use
  Company Number: PHFR2007GB03059

PATIENT
  Age: 67 Year
  Sex: Female
  Weight: 70 kg

DRUGS (5)
  1. FEMARA [Suspect]
     Indication: BREAST CANCER METASTATIC
     Dosage: 2.5 MG, QD
     Route: 048
     Dates: start: 20061117
  2. IRBESARTAN [Concomitant]
     Route: 065
  3. NITRAZEPAM [Concomitant]
     Dosage: 75MG / DAY
     Route: 048
  4. BENDROFLUMETHIAZIDE [Concomitant]
     Route: 065
  5. LANSOPRAZOLE [Concomitant]
     Route: 065

REACTIONS (4)
  - BLOOD CREATINE PHOSPHOKINASE INCREASED [None]
  - MOBILITY DECREASED [None]
  - MYALGIA [None]
  - MYOSITIS [None]
